FAERS Safety Report 14124100 (Version 1)
Quarter: 2017Q4

REPORT INFORMATION
  Report Type: Spontaneous
  Country: US (occurrence: US)
  Receive Date: 20171025
  Receipt Date: 20171025
  Transmission Date: 20180321
  Serious: Yes (Hospitalization, Other)
  Sender: FDA-Public Use
  Company Number: US-PFIZER INC-2017454787

PATIENT
  Age: 74 Year
  Sex: Female

DRUGS (2)
  1. LYRICA [Suspect]
     Active Substance: PREGABALIN
     Indication: NEUROPATHY PERIPHERAL
  2. LYRICA [Suspect]
     Active Substance: PREGABALIN
     Indication: FIBROMYALGIA

REACTIONS (10)
  - Myasthenia gravis [Unknown]
  - Arthropathy [Unknown]
  - Pain [Unknown]
  - Polyarthritis [Unknown]
  - Carpal tunnel syndrome [Unknown]
  - Hypoaesthesia [Unknown]
  - Sjogren^s syndrome [Unknown]
  - Asthenia [Unknown]
  - Chondrocalcinosis pyrophosphate [Unknown]
  - Gait disturbance [Unknown]
